FAERS Safety Report 7024996-7 (Version None)
Quarter: 2010Q4

REPORT INFORMATION
  Report Type: 
  Country: None (occurrence: None)
  Receive Date: 20101001
  Receipt Date: 20100930
  Transmission Date: 20110411
  Serious: Yes (Life-Threatening)
  Sender: FDA-Public Use
  Company Number: IE-NAPPMUNDI-GBR-2009-0005950

PATIENT

DRUGS (1)
  1. PALLADONE [Suspect]
     Indication: PRODUCT USED FOR UNKNOWN INDICATION
     Dosage: 25 MG, SINGLE
     Route: 065

REACTIONS (2)
  - RESPIRATORY DISTRESS [None]
  - WRONG DRUG ADMINISTERED [None]
